FAERS Safety Report 8909661 (Version 3)
Quarter: 2013Q1

REPORT INFORMATION
  Report Type: Spontaneous
  Country: US (occurrence: US)
  Receive Date: 20121115
  Receipt Date: 20130225
  Transmission Date: 20140127
  Serious: Yes (Hospitalization)
  Sender: FDA-Public Use
  Company Number: US-BAYER-2012-116707

PATIENT
  Age: 17 Year
  Sex: Female
  Weight: 72.56 kg

DRUGS (10)
  1. YASMIN [Suspect]
     Indication: CONTRACEPTION
     Dosage: UNK
     Dates: start: 20090101, end: 200908
  2. TYLENOL [Concomitant]
     Indication: HEADACHE
     Dosage: REGULAR BASIS
  3. TYLENOL [Concomitant]
     Indication: PYREXIA
  4. IBUPROFEN [Concomitant]
     Indication: HEADACHE
     Dosage: REGULAR BASIS
  5. IBUPROFEN [Concomitant]
     Indication: PYREXIA
  6. ANTIBIOTICS [Concomitant]
  7. ANTIMIGRAINE PREPARATIONS [Concomitant]
     Indication: MIGRAINE
  8. ANTI-ASTHMATICS [Concomitant]
     Indication: ASTHMA
  9. NSAID^S [Concomitant]
  10. THYROID PREPARATIONS [Concomitant]
     Indication: THYROID DISORDER

REACTIONS (8)
  - Gallbladder disorder [None]
  - Emotional distress [None]
  - Pain [None]
  - Injury [None]
  - General physical health deterioration [None]
  - Anxiety [None]
  - Anhedonia [None]
  - Pain [None]
